FAERS Safety Report 6676699-6 (Version None)
Quarter: 2010Q2

REPORT INFORMATION
  Report Type: 
  Country: None (occurrence: None)
  Receive Date: 20100412
  Receipt Date: 20100406
  Transmission Date: 20101027
  Serious: Yes (Other)
  Sender: FDA-Public Use
  Company Number: US-ROCHE-645157

PATIENT
  Sex: Male

DRUGS (6)
  1. PEGASYS [Suspect]
     Indication: HEPATITIS C
     Dosage: FORM:PRE-FILLED SYRINGE; THERAPY SUSPENDED IN WEEK 2.
     Route: 058
     Dates: start: 20090610
  2. PEGASYS [Suspect]
     Dosage: IN WEEK 43. DOSE REDUCED
     Route: 058
     Dates: start: 20091001
  3. COPEGUS [Suspect]
     Indication: HEPATITIS C
     Dosage: SUSPENDED 5 DAYS INTO WEEK 2
     Route: 048
     Dates: start: 20090610, end: 20090622
  4. COPEGUS [Suspect]
     Dosage: PATIENT WAS IN WEEK 43.
     Route: 048
     Dates: start: 20090625
  5. MAGNESIUM [Concomitant]
  6. TRAMADOL HCL [Concomitant]

REACTIONS (15)
  - ABDOMINAL PAIN LOWER [None]
  - DEPRESSION [None]
  - DYSPNOEA [None]
  - DYSURIA [None]
  - FALL [None]
  - FATIGUE [None]
  - INSOMNIA [None]
  - INTERVERTEBRAL DISC PROTRUSION [None]
  - OCULAR HYPERAEMIA [None]
  - PYREXIA [None]
  - RASH [None]
  - RED BLOOD CELL COUNT DECREASED [None]
  - SPINAL FRACTURE [None]
  - VISION BLURRED [None]
  - WHITE BLOOD CELL COUNT DECREASED [None]
